FAERS Safety Report 12932479 (Version 1)
Quarter: 2016Q4

REPORT INFORMATION
  Report Type: Spontaneous
  Country: US (occurrence: US)
  Receive Date: 20161111
  Receipt Date: 20161111
  Transmission Date: 20170207
  Serious: No
  Sender: FDA-Public Use
  Company Number: US-BAYER-2016-216650

PATIENT
  Age: 83 Year
  Sex: Female
  Weight: 88.89 kg

DRUGS (1)
  1. ALEVE [Suspect]
     Active Substance: NAPROXEN SODIUM
     Indication: MACULAR DEGENERATION
     Dosage: 2 DF, QD (1 IN THE MORNING AND 1 AT DINNER)
     Route: 048
     Dates: start: 2015

REACTIONS (2)
  - Product use issue [Unknown]
  - Off label use [Unknown]

NARRATIVE: CASE EVENT DATE: 2015
